FAERS Safety Report 6748142-X (Version None)
Quarter: 2010Q2

REPORT INFORMATION
  Report Type: 
  Country: None (occurrence: None)
  Receive Date: 20100531
  Receipt Date: 20100524
  Transmission Date: 20101027
  Serious: Yes (Hospitalization)
  Sender: FDA-Public Use
  Company Number: US-JNJFOC-20100509643

PATIENT
  Sex: Male
  Weight: 81.65 kg

DRUGS (6)
  1. FENTANYL CITRATE [Suspect]
     Indication: PAIN
     Route: 062
  2. FENTANYL CITRATE [Suspect]
     Route: 062
  3. FENTANYL CITRATE [Suspect]
     Route: 062
  4. FENTANYL CITRATE [Suspect]
     Route: 062
  5. MS CONTIN [Concomitant]
     Indication: PAIN
     Route: 048
  6. WELLBUTRIN [Concomitant]
     Indication: DEPRESSION
     Route: 048

REACTIONS (10)
  - BRONCHITIS [None]
  - DEPRESSION [None]
  - DRUG INEFFECTIVE [None]
  - GASTRIC DISORDER [None]
  - HEADACHE [None]
  - LOCAL SWELLING [None]
  - PAIN [None]
  - PNEUMONIA [None]
  - ROAD TRAFFIC ACCIDENT [None]
  - SPINAL DISORDER [None]
